FAERS Safety Report 11706898 (Version 2)
Quarter: 2015Q4

REPORT INFORMATION
  Report Type: Spontaneous
  Country: US (occurrence: US)
  Receive Date: 20151104
  Receipt Date: 20151110
  Transmission Date: 20160304
  Serious: No
  Sender: FDA-Public Use
  Company Number: US-ELI_LILLY_AND_COMPANY-US201101001845

PATIENT
  Age: 88 Year
  Sex: Female

DRUGS (3)
  1. FORTEO [Suspect]
     Active Substance: TERIPARATIDE
     Dosage: 20 UG, QD
     Route: 065
  2. FORTEO [Suspect]
     Active Substance: TERIPARATIDE
     Indication: OSTEOPOROSIS
     Dosage: 20 UG, QD
     Route: 065
     Dates: start: 20101216
  3. FORTEO [Suspect]
     Active Substance: TERIPARATIDE
     Dosage: 20 UG, QD
     Route: 065

REACTIONS (14)
  - Pain in extremity [Unknown]
  - Dysphonia [Unknown]
  - Hernia [Unknown]
  - Diarrhoea [Unknown]
  - Peripheral swelling [Unknown]
  - Visual acuity reduced [Unknown]
  - Mobility decreased [Unknown]
  - Back pain [Unknown]
  - Musculoskeletal pain [Unknown]
  - Sinusitis [Unknown]
  - Eye irritation [Unknown]
  - Dysstasia [Unknown]
  - Pain [Unknown]
  - Abdominal distension [Not Recovered/Not Resolved]

NARRATIVE: CASE EVENT DATE: 20110831
